FAERS Safety Report 6136805-9 (Version None)
Quarter: 2009Q1

REPORT INFORMATION
  Report Type: 
  Country: None (occurrence: None)
  Receive Date: 20090330
  Receipt Date: 20090224
  Transmission Date: 20090719
  Serious: Yes (Death, Other)
  Sender: FDA-Public Use
  Company Number: US-BAYER-200825102NA

PATIENT
  Sex: Male
  Weight: 95 kg

DRUGS (25)
  1. MAGNEVIST [Suspect]
     Indication: ANGIOGRAM
     Dosage: TOTAL DAILY DOSE: 40 ML
     Route: 042
     Dates: start: 20010307, end: 20010307
  2. MAGNEVIST [Suspect]
     Dosage: TOTAL DAILY DOSE: 10 ML
     Dates: start: 20050107, end: 20050107
  3. GADOLINIUM [Suspect]
     Indication: ANGIOGRAM
     Dosage: CONTRAST USED NOT SPECIFIED IN MEDICAL RECORDS RECEIVED 24-FEB-2009
     Dates: start: 20050107, end: 20050107
  4. GADOLINIUM [Suspect]
     Dates: start: 20031217, end: 20031217
  5. GADOLINIUM [Suspect]
     Dates: start: 20030409, end: 20030409
  6. PLAVIX [Concomitant]
  7. ASPIRIN [Concomitant]
  8. COLACE [Concomitant]
  9. WELCHOL [Concomitant]
  10. OMEGA 3 FATTY ACIDS [Concomitant]
  11. AMIODARONE HCL [Concomitant]
  12. DIGOXIN [Concomitant]
  13. COREG [Concomitant]
  14. LISINOPRIL [Concomitant]
  15. HUMALOG MIX 75/25 [Concomitant]
  16. PROTONIX [Concomitant]
  17. SYNTHROID [Concomitant]
  18. NIASPAN [Concomitant]
  19. ZETIA [Concomitant]
  20. PHOSLO [Concomitant]
  21. AMBIEN [Concomitant]
  22. EPOGEN [Concomitant]
     Dosage: TIW ON DIALYSIS DAYS AS OF 31 JUL 2004
     Route: 042
  23. EPOGEN [Concomitant]
     Dosage: TIW W/DIALYSIS AS OF FEB 2005
     Route: 058
  24. FERRLECIT [Concomitant]
     Dosage: Q WEEK WITH DIALYSIS AS OF FEB 2005
     Route: 042
  25. MUCOMYST [Concomitant]

REACTIONS (10)
  - ANXIETY [None]
  - EMOTIONAL DISTRESS [None]
  - FIBROSIS [None]
  - GENERAL PHYSICAL HEALTH DETERIORATION [None]
  - INJURY [None]
  - MOBILITY DECREASED [None]
  - NEPHROGENIC SYSTEMIC FIBROSIS [None]
  - PAIN [None]
  - QUALITY OF LIFE DECREASED [None]
  - SCAR [None]
